FAERS Safety Report 9021514 (Version 1)
Quarter: 2013Q1

REPORT INFORMATION
  Report Type: Spontaneous
  Country: US (occurrence: US)
  Receive Date: 20130119
  Receipt Date: 20130119
  Transmission Date: 20140127
  Serious: No
  Sender: FDA-Public Use
  Company Number: US-ALLERGAN-1200228US

PATIENT
  Age: 52 Year
  Sex: Female

DRUGS (1)
  1. BOTOX COSMETIC [Suspect]
     Indication: SKIN WRINKLING
     Dosage: 12 UNITS, SINGLE
     Route: 030
     Dates: start: 20111101, end: 20111101

REACTIONS (8)
  - Chest pain [Unknown]
  - Anxiety [Unknown]
  - Muscle twitching [Unknown]
  - Chest discomfort [Unknown]
  - Asthenia [Unknown]
  - Asthenia [Unknown]
  - Asthenia [Unknown]
  - Vertigo [Unknown]
